FAERS Safety Report 10048553 (Version 3)
Quarter: 2014Q2

REPORT INFORMATION
  Report Type: Spontaneous
  Country: US (occurrence: US)
  Receive Date: 20140331
  Receipt Date: 20140501
  Transmission Date: 20141212
  Serious: No
  Sender: FDA-Public Use
  Company Number: US-009507513-1403USA010857

PATIENT
  Age: 70 Year
  Sex: Female
  Weight: 56.24 kg

DRUGS (9)
  1. METFORMIN [Concomitant]
     Dosage: 1000 MG, BID
  2. SIMVASTATIN TABLETS, USP [Concomitant]
     Route: 048
  3. CLARITIN [Concomitant]
     Dosage: 10 MG, QD
     Route: 048
  4. PANTOPRAZOLE [Concomitant]
     Dosage: 40 MG, BID
  5. ALBUTEROL SULFATE [Concomitant]
     Dosage: 2 DF, PRN
  6. CENTRUM SILVER [Concomitant]
  7. ASCORBIC ACID [Concomitant]
  8. VITAMIN D (UNSPECIFIED) [Concomitant]
  9. MONTELUKAST SODIUM [Suspect]
     Indication: ASTHMA
     Dosage: 10 MG DAILY AT NIGHT
     Route: 048
     Dates: start: 20130320, end: 201303

REACTIONS (8)
  - Abasia [Recovered/Resolved]
  - Nasal congestion [Recovered/Resolved]
  - Cough [Recovered/Resolved]
  - Impaired work ability [Recovered/Resolved]
  - Chest discomfort [Recovered/Resolved]
  - Dyspnoea exertional [Recovered/Resolved]
  - Anxiety [Recovered/Resolved]
  - Therapeutic response changed [Unknown]
